FAERS Safety Report 5814697-2 (Version None)
Quarter: 2008Q3

REPORT INFORMATION
  Report Type: 
  Country: None (occurrence: None)
  Receive Date: 20080718
  Receipt Date: 20080331
  Transmission Date: 20090109
  Serious: No
  Sender: FDA-Public Use
  Company Number: US-KINGPHARMUSA00001-K200800387

PATIENT

DRUGS (11)
  1. LEVOXYL [Suspect]
     Indication: THYROID DISORDER
     Dosage: 150 MCG, QD
     Route: 048
     Dates: start: 20030101
  2. LEVOXYL [Suspect]
     Dosage: 125 MCG, QD
     Route: 048
  3. LEVOXYL [Suspect]
     Dosage: 100 MCG, QD
     Route: 048
  4. LEVOXYL [Suspect]
     Dosage: 88 MCG, QD
     Route: 048
     Dates: start: 20080201, end: 20080401
  5. LEVOXYL [Suspect]
     Dosage: 75 MCG, QD
     Route: 048
     Dates: start: 20080401
  6. LOTREL [Concomitant]
     Indication: HYPERTENSION
     Dosage: UNK, QD
     Route: 048
     Dates: start: 20040101
  7. VYTORIN [Concomitant]
     Indication: BLOOD CHOLESTEROL
     Dosage: UNK, QD
     Route: 048
  8. VALIUM [Concomitant]
     Indication: ANXIETY
     Dosage: 5 MG, PRN
     Route: 048
  9. EXCEDRIN                           /00214201/ [Concomitant]
     Indication: ARTHRITIS
     Dosage: UNK, PRN
     Route: 048
  10. SOMA COMPOUND                      /00049701/ [Concomitant]
     Indication: ARTHRITIS
     Dosage: UNK, PRN
  11. ASPIRIN [Concomitant]
     Indication: ARTHRITIS
     Dosage: UNK, PRN

REACTIONS (7)
  - BLOOD THYROID STIMULATING HORMONE INCREASED [None]
  - HEADACHE [None]
  - HYPERHIDROSIS [None]
  - INSOMNIA [None]
  - MALAISE [None]
  - NERVOUSNESS [None]
  - PALPITATIONS [None]
